FAERS Safety Report 17515269 (Version 1)
Quarter: 2020Q1

REPORT INFORMATION
  Report Type: Spontaneous
  Country: US (occurrence: US)
  Receive Date: 20200226
  Receipt Date: 20200226
  Transmission Date: 20200409
  Serious: Yes (Hospitalization, Disabling)
  Sender: FDA-Public Use
  Company Number: None

PATIENT
  Age: 88 Year
  Sex: Male
  Weight: 86.18 kg

DRUGS (18)
  1. LEVOFLOXACIN 750MG [Suspect]
     Active Substance: LEVOFLOXACIN
     Indication: URINARY TRACT INFECTION
     Dosage: ?          QUANTITY:1 DF DOSAGE FORM;?
     Route: 048
     Dates: start: 20200129, end: 20200130
  2. ELIQUIS [Concomitant]
     Active Substance: APIXABAN
  3. OMEGA 3 FISH OIL [Concomitant]
     Active Substance: FISH OIL\OMEGA-3 FATTY ACIDS
  4. AREDS 2 [Concomitant]
     Active Substance: MINERALS\VITAMINS
  5. FAMOTIDINE. [Concomitant]
     Active Substance: FAMOTIDINE
  6. HYDROCHLOROTHIAZE [Concomitant]
  7. MULTIVATIMIN [Concomitant]
  8. OSTEO BI FLEX [Concomitant]
  9. SULFAMETHOXAZOLE-TMP DS [Suspect]
     Active Substance: SULFAMETHOXAZOLE\TRIMETHOPRIM
     Dosage: ?          QUANTITY:1 DF DOSAGE FORM;?
     Route: 048
     Dates: start: 20200131, end: 20200201
  10. LASIX [Concomitant]
     Active Substance: FUROSEMIDE
  11. ASPIRIN. [Concomitant]
     Active Substance: ASPIRIN
  12. TYLENOL [Concomitant]
     Active Substance: ACETAMINOPHEN
  13. STOOL SOFTENER (DOCUSATE) [Concomitant]
     Active Substance: DOCUSATE
  14. FINASTERIDE. [Concomitant]
     Active Substance: FINASTERIDE
  15. LEVOFLOXACIN 250MG [Suspect]
     Active Substance: LEVOFLOXACIN
     Dosage: ?          QUANTITY:1 DF DOSAGE FORM;?
     Route: 048
     Dates: start: 20200202, end: 20200207
  16. LUTEIN [Concomitant]
     Active Substance: LUTEIN
  17. FLOMAX [Concomitant]
     Active Substance: TAMSULOSIN HYDROCHLORIDE
  18. TRIAMCINOTONE CREAM [Concomitant]

REACTIONS (12)
  - Blood bilirubin increased [None]
  - Nephrolithiasis [None]
  - Dehydration [None]
  - Hepatic steatosis [None]
  - Cholelithiasis [None]
  - Vomiting [None]
  - Balance disorder [None]
  - Neuropathy peripheral [None]
  - Gait disturbance [None]
  - Nausea [None]
  - Tendonitis [None]
  - Transient ischaemic attack [None]
